FAERS Safety Report 7736475-X (Version None)
Quarter: 2011Q3

REPORT INFORMATION
  Report Type: 
  Country: None (occurrence: None)
  Receive Date: 20110908
  Receipt Date: 20110830
  Transmission Date: 20111222
  Serious: Yes (Other)
  Sender: FDA-Public Use
  Company Number: BE-BRISTOL-MYERS SQUIBB COMPANY-16038630

PATIENT
  Age: 59 Year
  Sex: Male

DRUGS (2)
  1. CETUXIMAB [Suspect]
     Indication: HEAD AND NECK CANCER
     Route: 042
     Dates: start: 20100810, end: 20100810
  2. DOCETAXEL [Suspect]
     Indication: HEAD AND NECK CANCER
     Route: 042
     Dates: start: 20100810, end: 20100817

REACTIONS (5)
  - FATIGUE [None]
  - NEUTROPENIA [None]
  - HYPOPHAGIA [None]
  - DEHYDRATION [None]
  - HYPONATRAEMIA [None]
